FAERS Safety Report 9704863 (Version 2)
Quarter: 2013Q4

REPORT INFORMATION
  Report Type: Spontaneous
  Country: IT (occurrence: IT)
  Receive Date: 20131122
  Receipt Date: 20131122
  Transmission Date: 20140711
  Serious: Yes (Other)
  Sender: FDA-Public Use
  Company Number: IT-AMGEN-ITASP2013076234

PATIENT
  Age: 80 Year
  Sex: Male
  Weight: 34.01 kg

DRUGS (1)
  1. VECTIBIX [Suspect]
     Indication: ADENOCARCINOMA OF COLON
     Dosage: 450 MG, CYCLICAL
     Route: 042
     Dates: start: 20130801

REACTIONS (6)
  - Skin toxicity [Recovered/Resolved]
  - Purpura [Unknown]
  - Pain [Unknown]
  - Acne [Unknown]
  - Dermatitis exfoliative [Unknown]
  - Pruritus [Unknown]
